FAERS Safety Report 9144409 (Version 1)
Quarter: 2013Q1

REPORT INFORMATION
  Report Type: Spontaneous
  Country: FR (occurrence: FR)
  Receive Date: 20130306
  Receipt Date: 20130306
  Transmission Date: 20140127
  Serious: Yes (Hospitalization)
  Sender: FDA-Public Use
  Company Number: FR-ROCHE-1198659

PATIENT
  Age: 81 Year
  Sex: Female

DRUGS (12)
  1. LUCENTIS [Suspect]
     Indication: PRODUCT USED FOR UNKNOWN INDICATION
     Dosage: 10 MG/ML INJECTION
     Route: 050
     Dates: start: 20080626
  2. FLODIL [Concomitant]
     Route: 065
  3. COVERSYL [Concomitant]
  4. FLUDEX [Concomitant]
  5. LEVOTHYROX [Concomitant]
  6. OMEPRAZOLE [Concomitant]
  7. LEXOMIL [Concomitant]
  8. NOCTRAN [Concomitant]
  9. OROCAL [Concomitant]
  10. METHOTREXATE [Concomitant]
     Route: 065
  11. SPECIAFOLDINE [Concomitant]
     Route: 065
  12. ARIMIDEX [Concomitant]

REACTIONS (2)
  - Hypertensive crisis [Recovered/Resolved]
  - Atrial fibrillation [Recovered/Resolved]
